FAERS Safety Report 19549785 (Version 4)
Quarter: 2021Q3

REPORT INFORMATION
  Report Type: Report from Study
  Country: US (occurrence: US)
  Receive Date: 20210715
  Receipt Date: 20210916
  Transmission Date: 20211014
  Serious: Yes (Hospitalization, Other)
  Sender: FDA-Public Use
  Company Number: US-BEH-2021133830

PATIENT
  Age: 74 Year
  Sex: Male
  Weight: 86.17 kg

DRUGS (2)
  1. HIZENTRA [Suspect]
     Active Substance: HUMAN IMMUNOGLOBULIN G
     Dosage: 40 MILLILITER, QOW
     Route: 058
     Dates: start: 20210624
  2. HIZENTRA [Suspect]
     Active Substance: HUMAN IMMUNOGLOBULIN G
     Indication: HYPOGAMMAGLOBULINAEMIA
     Dosage: 8 GRAM, QOW
     Route: 058
     Dates: start: 20210624

REACTIONS (7)
  - Device infusion issue [Unknown]
  - Postoperative wound complication [Unknown]
  - Therapy interrupted [Unknown]
  - Post procedural haematoma [Recovered/Resolved]
  - Fall [Recovered/Resolved]
  - Wound complication [Recovered/Resolved]
  - No adverse event [Unknown]

NARRATIVE: CASE EVENT DATE: 20210625
